FAERS Safety Report 4952577-5 (Version None)
Quarter: 2006Q1

REPORT INFORMATION
  Report Type: 
  Country: None (occurrence: None)
  Receive Date: 20060317
  Receipt Date: 20060314
  Transmission Date: 20060701
  Serious: No
  Sender: FDA-Public Use
  Company Number: ZONI002288

PATIENT
  Age: 75 Year
  Sex: Male

DRUGS (2)
  1. ZONISAMIDE [Suspect]
     Dosage: 200 MG, 1 IN 1 D, ORAL
     Route: 048
     Dates: start: 20050805, end: 20051113
  2. DEPAKENE-R (VALPOATE SEMISODIUM) [Suspect]
     Dosage: 800 MG, ORAL
     Route: 048
     Dates: start: 20051114, end: 20060110

REACTIONS (3)
  - LYMPHADENOPATHY [None]
  - LYMPHOMA [None]
  - PETECHIAE [None]
